FAERS Safety Report 7572449-X (Version None)
Quarter: 2011Q2

REPORT INFORMATION
  Report Type: 
  Country: None (occurrence: None)
  Receive Date: 20110624
  Receipt Date: 20110621
  Transmission Date: 20111010
  Serious: Yes (Hospitalization)
  Sender: FDA-Public Use
  Company Number: US-GILEAD-2011-0040719

PATIENT
  Sex: Female
  Weight: 63.56 kg

DRUGS (10)
  1. COUMADIN [Concomitant]
  2. ZYPREXA [Concomitant]
  3. LETAIRIS [Suspect]
     Indication: PULMONARY HYPERTENSION
     Route: 048
     Dates: start: 20081125
  4. CLARITIN [Concomitant]
  5. PREMARIN [Concomitant]
  6. PAROXETINE HCL [Concomitant]
  7. ASCORBIC ACID [Concomitant]
  8. VITAMIN D [Concomitant]
  9. MULTI-VITAMIN [Concomitant]
  10. LISINOPRIL [Concomitant]

REACTIONS (2)
  - COMPRESSION FRACTURE [None]
  - FALL [None]
